FAERS Safety Report 8523331-2 (Version None)
Quarter: 2012Q3

REPORT INFORMATION
  Report Type: 
  Country: None (occurrence: None)
  Receive Date: 20120713
  Receipt Date: 20120713
  Transmission Date: 20120928
  Serious: Yes (Hospitalization)
  Sender: FDA-Public Use
  Company Number: None

PATIENT
  Age: 67 Year
  Sex: Male
  Weight: 86.4 kg

DRUGS (1)
  1. VANCOMYCIN [Suspect]
     Dosage: 1000 MG BID IV
     Route: 042
     Dates: start: 20110820, end: 20110830

REACTIONS (1)
  - THROMBOCYTOPENIA [None]
